FAERS Safety Report 23172817 (Version 1)
Quarter: 2023Q4

REPORT INFORMATION
  Report Type: Spontaneous
  Country: FR (occurrence: FR)
  Receive Date: 20231110
  Receipt Date: 20231110
  Transmission Date: 20240110
  Serious: Yes (Other)
  Sender: FDA-Public Use
  Company Number: FR-VER-202300029

PATIENT
  Age: 34 Year
  Sex: Male

DRUGS (2)
  1. TRIPTORELIN PAMOATE [Suspect]
     Active Substance: TRIPTORELIN PAMOATE
     Indication: Off label use
     Dosage: 11.25 MG,3 M
     Route: 030
     Dates: start: 202009
  2. TRIPTORELIN PAMOATE [Suspect]
     Active Substance: TRIPTORELIN PAMOATE
     Indication: Antiandrogen therapy
     Dosage: 11.25 MG,3 M
     Route: 030
     Dates: start: 202009

REACTIONS (1)
  - Normochromic normocytic anaemia [Unknown]
